FAERS Safety Report 7958090-5 (Version None)
Quarter: 2011Q4

REPORT INFORMATION
  Report Type: 
  Country: None (occurrence: None)
  Receive Date: 20111205
  Receipt Date: 20111126
  Transmission Date: 20120403
  Serious: Yes (Other)
  Sender: FDA-Public Use
  Company Number: CN-ASTRAZENECA-2011SE70315

PATIENT

DRUGS (8)
  1. PROPOFOL [Suspect]
     Dosage: MAINTAINED WITH 4 MG/(KG.H)
     Route: 042
  2. PROPOFOL [Suspect]
     Route: 042
  3. MIDAZOLAM [Suspect]
     Indication: ANAESTHESIA
     Dosage: 0.05 MG/KG
     Route: 042
  4. LIDOCAINE [Suspect]
     Indication: ANAESTHESIA
     Dosage: 0.8-1 %
     Route: 042
  5. PROPOFOL [Suspect]
     Indication: ANAESTHESIA
     Dosage: 1.5-2 MG/KG
     Route: 042
  6. ROPIVACAINE HYDROCHLORIDE [Suspect]
     Indication: ANAESTHESIA
     Dosage: 0.2-0.25 %
     Route: 042
  7. ATROPINE [Suspect]
     Dosage: 0.01-0.02 MG/KG
     Route: 030
  8. KETAMINE HCL [Suspect]
     Indication: ANAESTHESIA
     Dosage: 4-5 MG/KG
     Route: 030

REACTIONS (1)
  - MOVEMENT DISORDER [None]
